FAERS Safety Report 10460881 (Version 1)
Quarter: 2014Q3

REPORT INFORMATION
  Report Type: Spontaneous
  Country: US (occurrence: None)
  Receive Date: 20140917
  Receipt Date: 20140917
  Transmission Date: 20150326
  Serious: Yes (Life-Threatening, Hospitalization)
  Sender: FDA-Public Use
  Company Number: None

PATIENT
  Age: 5 Year
  Sex: Male
  Weight: 19.5 kg

DRUGS (1)
  1. SOLU-MEDROL [Suspect]
     Active Substance: METHYLPREDNISOLONE SODIUM SUCCINATE
     Indication: HYPERSENSITIVITY
     Route: 042
     Dates: start: 20140816, end: 20140817

REACTIONS (9)
  - Documented hypersensitivity to administered drug [None]
  - Swelling face [None]
  - Injection site pruritus [None]
  - Mental disorder [None]
  - Injection site rash [None]
  - Circumstance or information capable of leading to medication error [None]
  - Agitation [None]
  - Restlessness [None]
  - Anaphylactic reaction [None]

NARRATIVE: CASE EVENT DATE: 20140816
